FAERS Safety Report 4599694-X (Version None)
Quarter: 2005Q1

REPORT INFORMATION
  Report Type: 
  Country: None (occurrence: None)
  Receive Date: 20050303
  Receipt Date: 20050211
  Transmission Date: 20050727
  Serious: Yes (Other)
  Sender: FDA-Public Use
  Company Number: USA050290614

PATIENT
  Age: 27 Year
  Sex: Female

DRUGS (3)
  1. CYMBALTA [Suspect]
     Dosage: 60 MG DAY
  2. ORAL CONTRACEPTIVE NOS [Concomitant]
  3. VITAMINS [Concomitant]

REACTIONS (1)
  - PANCREATITIS [None]
